FAERS Safety Report 20023604 (Version 2)
Quarter: 2021Q4

REPORT INFORMATION
  Report Type: Report from Study
  Country: CN (occurrence: CN)
  Receive Date: 20211102
  Receipt Date: 20211114
  Transmission Date: 20220303
  Serious: Yes (Other)
  Sender: FDA-Public Use
  Company Number: CN-BoehringerIngelheim-2021-BI-134124

PATIENT
  Age: 68 Year
  Sex: Female
  Weight: 75 kg

DRUGS (8)
  1. TENECTEPLASE [Suspect]
     Active Substance: TENECTEPLASE
     Indication: Ischaemic stroke
     Dosage: 0.25MG/KG TOTAL DAILY DOSE AT ONSET OF EVENT 67.5 MILLIGRAM
     Route: 042
     Dates: start: 20210905
  2. ATORVASTATIN CALCIUM [Concomitant]
     Active Substance: ATORVASTATIN CALCIUM
     Indication: High density lipoprotein abnormal
     Route: 048
     Dates: start: 20210907, end: 20211012
  3. ATORVASTATIN CALCIUM [Concomitant]
     Active Substance: ATORVASTATIN CALCIUM
     Indication: Low density lipoprotein abnormal
  4. CLOPIDOGREL BISULFATE [Concomitant]
     Active Substance: CLOPIDOGREL BISULFATE
     Indication: Atrial fibrillation
     Route: 048
     Dates: start: 20210907, end: 20211012
  5. HERBALS [Concomitant]
     Active Substance: HERBALS
     Indication: Superficial vein thrombosis
     Route: 048
     Dates: start: 20210908, end: 20210930
  6. MUCOPOLYSACCHARIDE POLYSULFATE [Concomitant]
     Indication: Superficial vein thrombosis
     Route: 065
     Dates: start: 20210908, end: 20210916
  7. ENOXAPARIN SODIUM [Concomitant]
     Active Substance: ENOXAPARIN SODIUM
     Indication: Superficial vein thrombosis
     Route: 058
     Dates: start: 20210909, end: 20210916
  8. METOPROLOL SUCCINATE [Concomitant]
     Active Substance: METOPROLOL SUCCINATE
     Indication: Atrial fibrillation
     Route: 048
     Dates: start: 20210909

REACTIONS (1)
  - Escherichia sepsis [Recovered/Resolved]

NARRATIVE: CASE EVENT DATE: 20210912
